FAERS Safety Report 4945986-1 (Version None)
Quarter: 2006Q1

REPORT INFORMATION
  Report Type: 
  Country: None (occurrence: None)
  Receive Date: 20060316
  Receipt Date: 20051017
  Transmission Date: 20060701
  Serious: Yes (Hospitalization)
  Sender: FDA-Public Use
  Company Number: US-MERCK-0602USA00363

PATIENT
  Age: 50 Year
  Sex: Female
  Weight: 75 kg

DRUGS (3)
  1. TYLENOL (CAPLET) [Concomitant]
     Route: 065
  2. VIOXX [Suspect]
     Indication: ARTHRITIS
     Route: 048
     Dates: start: 19990101, end: 20020401
  3. VIOXX [Suspect]
     Indication: LIMB INJURY
     Route: 048
     Dates: start: 19990101, end: 20020401

REACTIONS (3)
  - BREAST DISORDER [None]
  - GALLBLADDER DISORDER [None]
  - MYOCARDIAL INFARCTION [None]
